FAERS Safety Report 10433986 (Version 5)
Quarter: 2015Q2

REPORT INFORMATION
  Report Type: Spontaneous
  Country: US (occurrence: US)
  Receive Date: 20140905
  Receipt Date: 20150430
  Transmission Date: 20150821
  Serious: Yes (Other)
  Sender: FDA-Public Use
  Company Number: US-BAYER-2014-127280

PATIENT
  Sex: Female

DRUGS (3)
  1. BAYER LOW DOSE [Suspect]
     Active Substance: ASPIRIN
     Dosage: 81 MG, QD
  2. BAYER LOW DOSE [Suspect]
     Active Substance: ASPIRIN
     Dosage: 2-4 (81MG) IN ADDITION TO REGULAR DOSE
  3. TIKOSYN [Concomitant]
     Active Substance: DOFETILIDE

REACTIONS (6)
  - Skin fissures [Not Recovered/Not Resolved]
  - Skin haemorrhage [None]
  - Skin haemorrhage [Not Recovered/Not Resolved]
  - Impaired healing [Not Recovered/Not Resolved]
  - Sweat gland disorder [None]
  - Rash macular [Not Recovered/Not Resolved]
